FAERS Safety Report 5983829-8 (Version None)
Quarter: 2008Q4

REPORT INFORMATION
  Report Type: 
  Country: None (occurrence: None)
  Receive Date: 20081205
  Receipt Date: 20081205
  Transmission Date: 20090506
  Serious: No
  Sender: FDA-Public Use
  Company Number: None

PATIENT
  Sex: Female
  Weight: 77 kg

DRUGS (4)
  1. TEMOZOLOMIDE [Suspect]
     Dosage: 1040 MG
  2. LACTULOSE [Concomitant]
  3. METOCLOPRAMIDE [Concomitant]
  4. ONDANSETRON [Concomitant]

REACTIONS (3)
  - PANCYTOPENIA [None]
  - SEPSIS [None]
  - THROMBOCYTOPENIA [None]
